FAERS Safety Report 7319390-5 (Version None)
Quarter: 2011Q1

REPORT INFORMATION
  Report Type: 
  Country: None (occurrence: None)
  Receive Date: 20110214
  Receipt Date: 20110203
  Transmission Date: 20110831
  Serious: Yes (Other)
  Sender: FDA-Public Use
  Company Number: 2011SP000105

PATIENT
  Age: 64 Year
  Sex: Female
  Weight: 42.2 kg

DRUGS (14)
  1. PRODUCTS [Concomitant]
  2. FEXOFENADINE [Concomitant]
  3. CIPRO [Concomitant]
  4. NEBIVOLOL [Concomitant]
  5. LUNESTA [Suspect]
     Indication: INSOMNIA
     Dosage: 1.5 MG;QOD;ORAL; HS;ORAL
     Route: 048
     Dates: start: 20101201, end: 20110120
  6. LUNESTA [Suspect]
     Indication: INSOMNIA
     Dosage: 1.5 MG;QOD;ORAL; HS;ORAL
     Route: 048
     Dates: start: 20080124
  7. BUSPIRONE [Concomitant]
  8. NORVASC [Concomitant]
  9. BUTALBITAL [Concomitant]
  10. ESGIC-PULS [Concomitant]
  11. PREVACID [Concomitant]
  12. PREV MEDS [Concomitant]
  13. DESYREL [Concomitant]
  14. PAXIL [Concomitant]

REACTIONS (12)
  - WEIGHT DECREASED [None]
  - NERVOUS SYSTEM DISORDER [None]
  - FALL [None]
  - WEIGHT GAIN POOR [None]
  - TOOTH EXTRACTION [None]
  - ABDOMINAL DISTENSION [None]
  - INSOMNIA [None]
  - MILK ALLERGY [None]
  - INFLUENZA [None]
  - DRUG INEFFECTIVE [None]
  - CONVULSION [None]
  - HYPERHIDROSIS [None]
